FAERS Safety Report 10043959 (Version 2)
Quarter: 2014Q1

REPORT INFORMATION
  Report Type: Spontaneous
  Country: US (occurrence: US)
  Receive Date: 20140328
  Receipt Date: 20140328
  Transmission Date: 20141002
  Serious: No
  Sender: FDA-Public Use
  Company Number: US-MYLANLABS-2013S1012703

PATIENT
  Age: 70 Year
  Sex: Female
  Weight: 75.3 kg

DRUGS (6)
  1. EMSAM (SELEGILINE TRANSDERMAL SYSTEM) [Suspect]
     Indication: DEPRESSION
     Dosage: DAILY
     Route: 062
     Dates: start: 20130604
  2. EMSAM (SELEGILINE TRANSDERMAL SYSTEM) [Suspect]
     Indication: ANXIETY
     Dosage: DAILY
     Route: 062
     Dates: start: 20130604
  3. ATIVAN [Concomitant]
     Indication: ANXIETY
     Route: 048
  4. NEURONTIN [Concomitant]
     Route: 048
  5. SEROQUEL [Concomitant]
     Indication: INSOMNIA
  6. METOPROLOL [Concomitant]
     Indication: BLOOD PRESSURE INCREASED

REACTIONS (5)
  - Headache [Recovered/Resolved]
  - Feeling abnormal [Recovered/Resolved]
  - Crying [Recovered/Resolved]
  - Somnolence [Recovered/Resolved]
  - Expired drug administered [Not Recovered/Not Resolved]
